FAERS Safety Report 7365878-0 (Version None)
Quarter: 2011Q1

REPORT INFORMATION
  Report Type: 
  Country: None (occurrence: None)
  Receive Date: 20110322
  Receipt Date: 20091114
  Transmission Date: 20110831
  Serious: Yes (Death, Hospitalization, Other)
  Sender: FDA-Public Use
  Company Number: US-BAYER-200939477NA

PATIENT
  Sex: Male
  Weight: 83.9 kg

DRUGS (21)
  1. LASIX [Concomitant]
     Dosage: 40 MG DAILY
     Route: 048
     Dates: start: 20030512
  2. ASPIRIN [Concomitant]
     Dosage: 325 MG DAILY
     Route: 048
     Dates: start: 20020729
  3. LASIX [Concomitant]
     Dosage: DAILY DOSE 20 MG
     Route: 042
     Dates: start: 20030610
  4. EPINEPHRINE [Concomitant]
     Dosage: UNK
     Route: 042
     Dates: start: 20030610
  5. MANNITOL [Concomitant]
     Indication: CARDIOPULMONARY BYPASS
     Dosage: 12.5 G
     Dates: start: 20030610, end: 20030610
  6. ALTACE [Concomitant]
     Dosage: 10 MG TWICE A DAY
     Route: 048
     Dates: start: 20020729
  7. LANOXIN [Concomitant]
     Dosage: 0.125 MG DAILY
     Route: 048
  8. INSULIN [Concomitant]
     Dosage: UNK
     Dates: start: 20020729
  9. NEO-SYNEPHRINOL [Concomitant]
  10. GLUCOVANCE [Concomitant]
     Dosage: 2
     Route: 048
     Dates: start: 20010922
  11. IMMUNOGLOBULINS [Concomitant]
     Indication: DEMYELINATING POLYNEUROPATHY
     Dosage: EVERY 4 WEEKS, LONG TERM
     Route: 042
  12. HEPARIN [Concomitant]
     Dosage: 10000 MG
     Dates: start: 20030610, end: 20030610
  13. NEO-SYNEPHRINOL [Concomitant]
     Indication: CARDIOPULMONARY BYPASS
     Dosage: UNK
     Dates: start: 20030610, end: 20030610
  14. TRASYLOL [Suspect]
     Indication: CORONARY ARTERY BYPASS
     Dosage: 100 ML FOLLOWED BY 25 ML/H
     Route: 042
     Dates: start: 20030610, end: 20030610
  15. ALDACTONE [Concomitant]
     Dosage: 25 MG DAILY
     Route: 048
     Dates: start: 20030512
  16. ZETIA [Concomitant]
     Dosage: 10 MG
     Route: 048
     Dates: start: 20030512
  17. AMARYL [Concomitant]
     Dosage: UNK
     Dates: start: 20030527
  18. EPINEPHRINE [Concomitant]
     Dosage: UNK
     Route: 042
     Dates: start: 20030609
  19. CARDIZEM [Concomitant]
     Route: 042
  20. HEPARIN [Concomitant]
     Indication: CARDIOPULMONARY BYPASS
     Dosage: UNK
     Dates: start: 20030610
  21. PROTAMINE SULFATE [Concomitant]
     Dosage: 330 MG
     Dates: start: 20030610

REACTIONS (8)
  - RENAL IMPAIRMENT [None]
  - RENAL INJURY [None]
  - INJURY [None]
  - RENAL FAILURE ACUTE [None]
  - RENAL FAILURE [None]
  - DEATH [None]
  - PAIN [None]
  - UNEVALUABLE EVENT [None]
